FAERS Safety Report 7874433-5 (Version None)
Quarter: 2011Q4

REPORT INFORMATION
  Report Type: 
  Country: None (occurrence: None)
  Receive Date: 20111030
  Receipt Date: 20110822
  Transmission Date: 20120403
  Serious: Yes (Hospitalization)
  Sender: FDA-Public Use
  Company Number: JP-AMGEN-JPNSP2011018606

PATIENT
  Age: 40 Year
  Sex: Male
  Weight: 51 kg

DRUGS (10)
  1. CINACALCET HYDROCHLORIDE [Suspect]
     Dosage: 25 MG, QD
     Route: 048
     Dates: start: 20100628, end: 20100823
  2. MUCOSTA [Concomitant]
     Indication: GASTRITIS
     Dosage: 100 MG, TID
     Route: 048
     Dates: start: 20030101
  3. GASMOTIN [Concomitant]
     Indication: GASTRITIS
     Dosage: 5 MG, TID
     Route: 048
     Dates: start: 20030101
  4. CINACALCET HYDROCHLORIDE [Suspect]
     Dosage: 50 MG, QD
     Route: 048
     Dates: start: 20100824, end: 20101208
  5. OMEPRAZOLE [Concomitant]
     Indication: GASTRITIS
     Dosage: 20 MG, UNK
     Route: 048
     Dates: start: 20030101
  6. CINACALCET HYDROCHLORIDE [Suspect]
     Dosage: 50 MG, QD
     Route: 048
     Dates: start: 20100316, end: 20100406
  7. OMEPRAZOLE [Concomitant]
     Route: 048
     Dates: start: 20030101
  8. ALLOID G [Concomitant]
     Indication: GASTRITIS
     Dosage: 20 ML, QID
     Route: 048
     Dates: start: 20030101
  9. CINACALCET HYDROCHLORIDE [Suspect]
     Indication: HYPERPARATHYROIDISM SECONDARY
     Dosage: 25 MG, QD
     Route: 048
     Dates: start: 20081001, end: 20100315
  10. LOSARTAN POTASSIUM [Concomitant]
     Indication: HYPERTENSION
     Dosage: 50 MG, QD
     Route: 048
     Dates: start: 20030101

REACTIONS (2)
  - INTESTINAL OBSTRUCTION [None]
  - ABDOMINAL PAIN [None]
